FAERS Safety Report 14290280 (Version 1)
Quarter: 2017Q4

REPORT INFORMATION
  Report Type: Spontaneous
  Country: US (occurrence: US)
  Receive Date: 20171215
  Receipt Date: 20171215
  Transmission Date: 20180321
  Serious: No
  Sender: FDA-Public Use
  Company Number: US-LPDUSPRD-20170133

PATIENT
  Age: 36 Year
  Sex: Female

DRUGS (1)
  1. VENOFER [Suspect]
     Active Substance: IRON SUCROSE
     Dosage: 200 MG IN 100 ML NSS
     Route: 041
     Dates: start: 20161220, end: 20161220

REACTIONS (3)
  - Pain [Recovered/Resolved]
  - Injection site discolouration [Recovered/Resolved]
  - Feeling abnormal [Recovered/Resolved]

NARRATIVE: CASE EVENT DATE: 20161220
